FAERS Safety Report 9096688 (Version 1)
Quarter: 2013Q1

REPORT INFORMATION
  Report Type: Spontaneous
  Country: KR (occurrence: None)
  Receive Date: 20130125
  Receipt Date: 20130125
  Transmission Date: 20140127
  Serious: Yes (Other)
  Sender: FDA-Public Use
  Company Number: KR-ACCORD-015974

PATIENT
  Age: 49 Year
  Sex: Male

DRUGS (2)
  1. CLONAZEPAM (CLONAZEPAM) (CLONAZEPAM) [Suspect]
     Indication: PRODUCT USED FOR UNKNOWN INDICATION
  2. FLUNITRAZEPAM [Suspect]

REACTIONS (1)
  - Sexual abuse [None]
